FAERS Safety Report 25123641 (Version 1)
Quarter: 2025Q1

REPORT INFORMATION
  Report Type: Spontaneous
  Country: CH (occurrence: CH)
  Receive Date: 20250326
  Receipt Date: 20250326
  Transmission Date: 20250409
  Serious: Yes (Other)
  Sender: ACCORD
  Company Number: CH-MLMSERVICE-20250313-PI443957-00140-2

PATIENT
  Age: 12 Year
  Sex: Male

DRUGS (3)
  1. ETOPOSIDE [Suspect]
     Active Substance: ETOPOSIDE
     Indication: Cardiac neoplasm malignant
  2. IFOSFAMIDE [Suspect]
     Active Substance: IFOSFAMIDE
     Indication: Cardiac neoplasm malignant
  3. VINCRISTINE [Suspect]
     Active Substance: VINCRISTINE
     Indication: Cardiac neoplasm malignant

REACTIONS (2)
  - Cardiotoxicity [Unknown]
  - Nephropathy toxic [Unknown]
